FAERS Safety Report 11484946 (Version 1)
Quarter: 2015Q3

REPORT INFORMATION
  Report Type: Spontaneous
  Country: US (occurrence: US)
  Receive Date: 20150903
  Receipt Date: 20150903
  Transmission Date: 20151125
  Serious: No
  Sender: FDA-Public Use
  Company Number: US-ELI_LILLY_AND_COMPANY-US201207009203

PATIENT
  Age: 61 Year
  Sex: Female

DRUGS (2)
  1. CYMBALTA [Suspect]
     Active Substance: DULOXETINE HYDROCHLORIDE
     Indication: DEPRESSION
     Dosage: 60 MG, QD
     Dates: start: 201112
  2. CYMBALTA [Suspect]
     Active Substance: DULOXETINE HYDROCHLORIDE
     Dosage: 60 MG, BID

REACTIONS (11)
  - Drug dose omission [Unknown]
  - Headache [Unknown]
  - Drug withdrawal syndrome [Unknown]
  - Anxiety [Unknown]
  - Tremor [Unknown]
  - Psychomotor hyperactivity [Unknown]
  - Crying [Unknown]
  - Vomiting [Unknown]
  - Feeling abnormal [Unknown]
  - Feeling jittery [Unknown]
  - Nausea [Unknown]

NARRATIVE: CASE EVENT DATE: 201207
